FAERS Safety Report 20951316 (Version 8)
Quarter: 2024Q3

REPORT INFORMATION
  Report Type: Spontaneous
  Country: US (occurrence: US)
  Receive Date: 20220613
  Receipt Date: 20240918
  Transmission Date: 20241017
  Serious: Yes (Death, Hospitalization, Other)
  Sender: PFIZER
  Company Number: US-PFIZER INC-2019046103

PATIENT
  Age: 75 Year
  Sex: Male

DRUGS (1)
  1. XELJANZ [Suspect]
     Active Substance: TOFACITINIB CITRATE
     Dosage: 5 MG, 1X/DAY

REACTIONS (8)
  - Death [Fatal]
  - Fall [Unknown]
  - Hip fracture [Unknown]
  - Spinal operation [Unknown]
  - Blood pressure abnormal [Unknown]
  - Back disorder [Unknown]
  - Pain [Not Recovered/Not Resolved]
  - Intentional product use issue [Unknown]

NARRATIVE: CASE EVENT DATE: 20240913
